FAERS Safety Report 5477431-4 (Version None)
Quarter: 2007Q4

REPORT INFORMATION
  Report Type: 
  Country: None (occurrence: None)
  Receive Date: 20071004
  Receipt Date: 20070925
  Transmission Date: 20080405
  Serious: Yes (Other)
  Sender: FDA-Public Use
  Company Number: GB-PFIZER INC-2007080514

PATIENT
  Age: 48 Year
  Sex: Female
  Weight: 72 kg

DRUGS (8)
  1. VARENICLINE TABLETS [Suspect]
     Indication: SMOKING CESSATION THERAPY
     Route: 048
     Dates: start: 20070622, end: 20070705
  2. AMITRIPTYLINE HCL [Concomitant]
     Route: 048
  3. EPANUTIN [Concomitant]
  4. MONTELUKAST SODIUM [Concomitant]
     Route: 048
  5. PREMARIN [Concomitant]
     Route: 048
  6. SALBUTAMOL [Concomitant]
     Route: 055
  7. SERETIDE [Concomitant]
     Route: 055
  8. SIMVASTATIN [Concomitant]
     Route: 048

REACTIONS (1)
  - EPILEPSY [None]
